FAERS Safety Report 20876520 (Version 3)
Quarter: 2023Q2

REPORT INFORMATION
  Report Type: Other
  Country: JP (occurrence: None)
  Receive Date: 20220526
  Receipt Date: 20230628
  Transmission Date: 20230722
  Serious: Yes (Death, Hospitalization, Other)
  Sender: FDA-Public Use
  Company Number: JP-ROCHE-3103907

PATIENT
  Age: 59 Year
  Sex: Female
  Weight: 53 kg

DRUGS (25)
  1. RITUXIMAB [Suspect]
     Active Substance: RITUXIMAB
     Indication: Prophylaxis against transplant rejection
     Dosage: SUBSEQUENT DOSES: 31-OCT-2019, 01-NOV-2019, 02-NOV-2019, 09-NOV-2019, 22-NOV-2019, 02-DEC-2019, 07-D
     Route: 042
     Dates: start: 20191022, end: 20191022
  2. MYCOPHENOLATE MOFETIL [Suspect]
     Active Substance: MYCOPHENOLATE MOFETIL
     Indication: Prophylaxis against transplant rejection
     Dosage: SUBSEQUENT DOSES 01-NOV-2019, 09-NOV-2019, 19-DEC-2019
     Route: 048
     Dates: start: 20191031
  3. TACROLIMUS [Suspect]
     Active Substance: TACROLIMUS
     Indication: Prophylaxis against transplant rejection
     Dosage: SUBSEQUENT DOSES ON 31/OCT/2019-01/NOV/2019, 01/NOV/2019-02/NOV/2019, 02/NOV/2019-09/NOV/2019, 09/NO
     Route: 048
     Dates: start: 20191031, end: 20191031
  4. TACROLIMUS [Suspect]
     Active Substance: TACROLIMUS
     Route: 048
     Dates: start: 20191031, end: 20191101
  5. TACROLIMUS [Suspect]
     Active Substance: TACROLIMUS
     Route: 048
     Dates: start: 20191101, end: 20191102
  6. TACROLIMUS [Suspect]
     Active Substance: TACROLIMUS
     Route: 048
     Dates: start: 20191102, end: 20191109
  7. TACROLIMUS [Suspect]
     Active Substance: TACROLIMUS
     Route: 048
     Dates: start: 20191109, end: 20191122
  8. TACROLIMUS [Suspect]
     Active Substance: TACROLIMUS
     Route: 048
     Dates: start: 20191122, end: 20191202
  9. TACROLIMUS [Suspect]
     Active Substance: TACROLIMUS
     Route: 048
     Dates: start: 20191207
  10. TACROLIMUS [Suspect]
     Active Substance: TACROLIMUS
     Route: 048
     Dates: start: 20200415, end: 20200522
  11. SOLU-CORTEF [Concomitant]
     Active Substance: HYDROCORTISONE SODIUM SUCCINATE
     Route: 042
     Dates: start: 20191022, end: 20191022
  12. SOLU-MEDROL [Concomitant]
     Active Substance: METHYLPREDNISOLONE SODIUM SUCCINATE
     Route: 042
     Dates: start: 20191031, end: 20191102
  13. SOLU-MEDROL [Concomitant]
     Active Substance: METHYLPREDNISOLONE SODIUM SUCCINATE
     Route: 042
     Dates: start: 20191103, end: 20191105
  14. SOLU-MEDROL [Concomitant]
     Active Substance: METHYLPREDNISOLONE SODIUM SUCCINATE
     Route: 042
     Dates: start: 20191031, end: 20191105
  15. PREDNISOLONE [Concomitant]
     Active Substance: PREDNISOLONE
     Route: 048
     Dates: start: 20191106, end: 20200115
  16. PREDNISOLONE [Concomitant]
     Active Substance: PREDNISOLONE
     Route: 048
     Dates: start: 20200116, end: 20200217
  17. PREDNISOLONE [Concomitant]
     Active Substance: PREDNISOLONE
     Route: 048
     Dates: start: 20200218, end: 20200302
  18. PREDNISOLONE [Concomitant]
     Active Substance: PREDNISOLONE
     Route: 048
     Dates: start: 20200303, end: 20200305
  19. HEPARIN [Concomitant]
     Active Substance: HEPARIN SODIUM
     Dates: start: 20191031
  20. ALPROSTADIL ALFADEX [Concomitant]
     Active Substance: ALPROSTADIL ALFADEX
     Route: 042
     Dates: start: 20191031, end: 20191101
  21. GABEXATE MESYLATE [Concomitant]
     Active Substance: GABEXATE MESYLATE
     Route: 042
     Dates: start: 20191031, end: 20191105
  22. MEROPENEM [Concomitant]
     Active Substance: MEROPENEM
     Dosage: ,
     Route: 042
     Dates: start: 20191021, end: 20191106
  23. MICAFUNGIN SODIUM [Concomitant]
     Active Substance: MICAFUNGIN SODIUM
     Dosage: -
     Route: 042
     Dates: start: 20191031, end: 20191106
  24. SULFAMETHOXAZOLE\TRIMETHOPRIM [Concomitant]
     Active Substance: SULFAMETHOXAZOLE\TRIMETHOPRIM
     Route: 048
     Dates: start: 20191031
  25. AMPHOTERICIN B [Concomitant]
     Active Substance: AMPHOTERICIN B
     Route: 048
     Dates: start: 20191031

REACTIONS (6)
  - Cytomegalovirus infection [Recovered/Resolved]
  - Portal vein thrombosis [Recovered/Resolved]
  - Biliary tract disorder [Unknown]
  - Cholangitis [Fatal]
  - Cerebral haemorrhage [Fatal]
  - Suspected drug-induced liver injury [Fatal]

NARRATIVE: CASE EVENT DATE: 20191116
